FAERS Safety Report 15463845 (Version 1)
Quarter: 2018Q4

REPORT INFORMATION
  Report Type: Spontaneous
  Country: US (occurrence: US)
  Receive Date: 20181001
  Receipt Date: 20181001
  Transmission Date: 20190204
  Serious: No
  Sender: FDA-Public Use
  Company Number: None

PATIENT
  Age: 41 Year
  Sex: Male

DRUGS (1)
  1. EPCLUSA [Suspect]
     Active Substance: SOFOSBUVIR\VELPATASVIR
     Dates: start: 20180907

REACTIONS (4)
  - Vision blurred [None]
  - Fatigue [None]
  - Red blood cell count decreased [None]
  - Abdominal distension [None]

NARRATIVE: CASE EVENT DATE: 20180923
